FAERS Safety Report 7630779-7 (Version None)
Quarter: 2011Q3

REPORT INFORMATION
  Report Type: 
  Country: None (occurrence: None)
  Receive Date: 20110722
  Receipt Date: 20110713
  Transmission Date: 20111222
  Serious: Yes (Hospitalization)
  Sender: FDA-Public Use
  Company Number: US-ASTRAZENECA-2011SE41852

PATIENT
  Age: 15199 Day
  Sex: Male
  Weight: 86.6 kg

DRUGS (11)
  1. BENAZEPRIL HYDROCHLORIDE [Concomitant]
  2. PEPCID [Concomitant]
  3. SEROQUEL [Suspect]
     Indication: BIPOLAR DISORDER
     Route: 048
  4. DEPAKOTE ER [Concomitant]
  5. PERCOCET [Concomitant]
  6. KLONOPIN [Concomitant]
  7. FELDENE [Concomitant]
  8. MECLIZINE [Concomitant]
     Indication: DIZZINESS
  9. CLARINEX [Concomitant]
  10. SEROQUEL [Suspect]
     Dosage: 25 MG IN THE MORNING AND 50 MG AT NIGHT
     Route: 048
  11. PAXIL [Concomitant]

REACTIONS (8)
  - WEIGHT DECREASED [None]
  - INTERVERTEBRAL DISC DEGENERATION [None]
  - INTRACRANIAL ANEURYSM [None]
  - INSOMNIA [None]
  - WEIGHT INCREASED [None]
  - DIZZINESS [None]
  - HEADACHE [None]
  - ARTHRITIS [None]
